FAERS Safety Report 9365627 (Version 1)
Quarter: 2013Q2

REPORT INFORMATION
  Report Type: Spontaneous
  Country: US (occurrence: None)
  Receive Date: 20130624
  Receipt Date: 20130624
  Transmission Date: 20140414
  Serious: Yes (Other)
  Sender: FDA-Public Use
  Company Number: None

PATIENT
  Sex: 0

DRUGS (2)
  1. BUPIVACAINE [Suspect]
     Indication: SPINAL ANAESTHESIA
     Route: 038
     Dates: start: 20130606, end: 20130607
  2. BUPIVACAINE [Suspect]
     Indication: CAESAREAN SECTION
     Route: 038
     Dates: start: 20130606, end: 20130607

REACTIONS (2)
  - Respiratory arrest [None]
  - Exposure during pregnancy [None]
